FAERS Safety Report 4428149-8 (Version None)
Quarter: 2004Q3

REPORT INFORMATION
  Report Type: 
  Country: None (occurrence: None)
  Receive Date: 20040726
  Receipt Date: 20040407
  Transmission Date: 20050211
  Serious: No
  Sender: FDA-Public Use
  Company Number: USA030537565

PATIENT
  Age: 77 Year
  Sex: Female
  Weight: 59 kg

DRUGS (4)
  1. FORTEO [Suspect]
     Indication: OSTEOPOROSIS
     Dosage: 20 UG DAY
     Dates: start: 20030313
  2. ATENOLOL [Concomitant]
  3. CITRACAL (CALCIUM CITRATE) [Concomitant]
  4. CALCIUM AND VITAMIN D [Concomitant]

REACTIONS (5)
  - BREAST PAIN [None]
  - BREAST SWELLING [None]
  - BREAST TENDERNESS [None]
  - HYPERTROPHY BREAST [None]
  - PAIN IN EXTREMITY [None]
